FAERS Safety Report 8842416 (Version 1)
Quarter: 2012Q4

REPORT INFORMATION
  Report Type: 
  Country: GB (occurrence: GB)
  Receive Date: 20121016
  Receipt Date: 20121016
  Transmission Date: 20130627
  Serious: Yes (Hospitalization, Other)
  Sender: FDA-Public Use
  Company Number: GB-B.I. PHARMACEUTICALS,INC./RIDGEFIELD-2012-UK-01402UK

PATIENT
  Age: 61 Year
  Sex: Male
  Weight: 92.07 kg

DRUGS (13)
  1. DABIGATRAN [Suspect]
     Indication: ATRIAL FIBRILLATION
     Dosage: 320 mg
     Route: 048
     Dates: start: 20120801, end: 20120829
  2. ALLOPURINOL [Concomitant]
  3. ASPIRIN [Concomitant]
  4. BISOPROLOL [Concomitant]
  5. CO-CODAMOL [Concomitant]
  6. COENZYME Q10 [Concomitant]
  7. DIGOXIN [Concomitant]
  8. EPLERENONE [Concomitant]
  9. FUROSEMIDE [Concomitant]
  10. GLICLAZIDE [Concomitant]
  11. METFORMIN [Concomitant]
  12. METOLAZONE [Concomitant]
  13. RAMIPRIL [Concomitant]

REACTIONS (2)
  - Renal impairment [Recovered/Resolved]
  - Haematuria [Recovered/Resolved]
